FAERS Safety Report 17647200 (Version 1)
Quarter: 2020Q2

REPORT INFORMATION
  Report Type: Spontaneous
  Country: US (occurrence: US)
  Receive Date: 20200409
  Receipt Date: 20200409
  Transmission Date: 20200713
  Serious: Yes (Other)
  Sender: FDA-Public Use
  Company Number: US-TEVA-2020-US-1219638

PATIENT
  Sex: Male

DRUGS (20)
  1. ZOLPIDEM [Concomitant]
     Active Substance: ZOLPIDEM TARTRATE
  2. SYNRIBO [Suspect]
     Active Substance: OMACETAXINE MEPESUCCINATE
     Indication: MYELODYSPLASTIC SYNDROME
     Dosage: 3.5 MG VIAL, DOSE: 2MG/0.57ML, TWICE DAILY FOR 3 DAYS OF A 28 DAY CYCLE
     Route: 065
     Dates: start: 20191123
  3. ROPINIROLE. [Concomitant]
     Active Substance: ROPINIROLE
  4. PREGABALIN. [Concomitant]
     Active Substance: PREGABALIN
  5. FUROSEMIDE. [Concomitant]
     Active Substance: FUROSEMIDE
  6. AMITRIPTYLINE [Concomitant]
     Active Substance: AMITRIPTYLINE
  7. COLACE [Concomitant]
     Active Substance: DOCUSATE SODIUM
  8. BOOST [Concomitant]
     Active Substance: DIETARY SUPPLEMENT
  9. OXYCODONE [Concomitant]
     Active Substance: OXYCODONE
  10. BUSPIRONE [Concomitant]
     Active Substance: BUSPIRONE HYDROCHLORIDE
  11. MIRALAX [Concomitant]
     Active Substance: POLYETHYLENE GLYCOL 3350
  12. POLYETHYLENE GLYCOL [Concomitant]
     Active Substance: POLYETHYLENE GLYCOLS
  13. CETIRIZINE [Concomitant]
     Active Substance: CETIRIZINE HYDROCHLORIDE
  14. ACYCLOVIR. [Concomitant]
     Active Substance: ACYCLOVIR
  15. EMLA [Concomitant]
     Active Substance: LIDOCAINE\PRILOCAINE
  16. POTASSIUM [Concomitant]
     Active Substance: POTASSIUM
  17. SERTRALINE [Concomitant]
     Active Substance: SERTRALINE HYDROCHLORIDE
  18. HYDROXYZINE [Concomitant]
     Active Substance: HYDROXYZINE HYDROCHLORIDE
  19. PROMETHAZINE [Concomitant]
     Active Substance: PROMETHAZINE HYDROCHLORIDE
  20. TRELEGY ELLIPTA [Concomitant]
     Active Substance: FLUTICASONE FUROATE\UMECLIDINIUM BROMIDE\VILANTEROL TRIFENATATE

REACTIONS (1)
  - Leukaemia [Unknown]
